FAERS Safety Report 6405310-4 (Version None)
Quarter: 2009Q4

REPORT INFORMATION
  Report Type: 
  Country: None (occurrence: None)
  Receive Date: 20091019
  Receipt Date: 20091009
  Transmission Date: 20100525
  Serious: Yes (Other)
  Sender: FDA-Public Use
  Company Number: US-ABBOTT-09P-163-0568993-00

PATIENT
  Sex: Male
  Weight: 3 kg

DRUGS (4)
  1. NORVIR [Suspect]
     Indication: DRUG EXPOSURE DURING PREGNANCY
     Route: 064
  2. TRUVADA [Suspect]
     Indication: DRUG EXPOSURE DURING PREGNANCY
  3. LEXIVA [Suspect]
     Indication: DRUG EXPOSURE DURING PREGNANCY
  4. ZIDOVUDINE [Concomitant]
     Indication: DRUG USE FOR UNKNOWN INDICATION
     Route: 064
     Dates: start: 20090814, end: 20090814

REACTIONS (2)
  - DRUG EXPOSURE DURING PREGNANCY [None]
  - FOETAL CARDIAC DISORDER [None]
